FAERS Safety Report 6383635-9 (Version None)
Quarter: 2009Q4

REPORT INFORMATION
  Report Type: 
  Country: None (occurrence: None)
  Receive Date: 20091001
  Receipt Date: 20090924
  Transmission Date: 20100525
  Serious: Yes (Hospitalization)
  Sender: FDA-Public Use
  Company Number: AU-AVENTIS-200915033GDDC

PATIENT
  Age: 53 Year
  Sex: Female

DRUGS (5)
  1. LANTUS [Suspect]
     Route: 058
     Dates: start: 20070101
  2. AUTOPEN INSULIN INJECTION PEN [Suspect]
  3. METFORMIN HCL [Concomitant]
  4. NOVORAPID [Concomitant]
  5. ASCORBIC ACID [Concomitant]

REACTIONS (1)
  - DIABETIC FOOT [None]
